FAERS Safety Report 9384805 (Version 1)
Quarter: 2013Q3

REPORT INFORMATION
  Report Type: Spontaneous
  Country: US (occurrence: US)
  Receive Date: 20130705
  Receipt Date: 20130705
  Transmission Date: 20140515
  Serious: Yes (Other)
  Sender: FDA-Public Use
  Company Number: US-PFIZER INC-2013194296

PATIENT
  Sex: Female

DRUGS (3)
  1. ZYVOX [Suspect]
     Indication: CELLULITIS
     Dosage: UNK
     Dates: start: 2012, end: 2012
  2. NEURONTIN [Concomitant]
  3. NORVASC [Concomitant]

REACTIONS (1)
  - Cellulitis [Unknown]
